FAERS Safety Report 4751611-5 (Version None)
Quarter: 2005Q3

REPORT INFORMATION
  Report Type: 
  Country: None (occurrence: None)
  Receive Date: 20050824
  Receipt Date: 20050818
  Transmission Date: 20060218
  Serious: Yes (Other)
  Sender: FDA-Public Use
  Company Number: US-JNJFOC-20050603986

PATIENT
  Sex: Male
  Weight: 117.48 kg

DRUGS (5)
  1. LEVAQUIN [Suspect]
     Route: 048
  2. SINEMET [Concomitant]
     Route: 048
  3. SINEMET [Concomitant]
     Indication: DIZZINESS
     Route: 048
  4. PLAVIX [Concomitant]
     Indication: ANTICOAGULANT THERAPY
     Route: 048
  5. VIAGRA [Concomitant]

REACTIONS (2)
  - AGEUSIA [None]
  - ANOSMIA [None]
